FAERS Safety Report 20902516 (Version 1)
Quarter: 2022Q2

REPORT INFORMATION
  Report Type: Spontaneous
  Country: IT (occurrence: IT)
  Receive Date: 20220601
  Receipt Date: 20220601
  Transmission Date: 20220720
  Serious: Yes (Hospitalization)
  Sender: FDA-Public Use
  Company Number: IT-ENDO PHARMACEUTICALS INC-2022-003285

PATIENT
  Age: 58 Year
  Sex: Female

DRUGS (14)
  1. COLY-MYCIN M [Suspect]
     Active Substance: COLISTIMETHATE SODIUM
     Indication: Skin ulcer
     Dosage: 9 MILLION UNIT, SINGLE (LOADING DOSE)
     Route: 042
  2. COLY-MYCIN M [Suspect]
     Active Substance: COLISTIMETHATE SODIUM
     Indication: Wound infection pseudomonas
     Dosage: 4.5 MILLION UNIT, BID/EVERY 12 HOURS (MAINTENANCE DOSE)
     Route: 042
  3. COLY-MYCIN M [Suspect]
     Active Substance: COLISTIMETHATE SODIUM
     Dosage: UNK UNKNOWN, UNKNOWN (DOSE ADJUSMENT FOR RENAL FUNCTION)
     Route: 042
  4. COLY-MYCIN M [Suspect]
     Active Substance: COLISTIMETHATE SODIUM
     Dosage: UNK UNKNOWN, UNKNOWN (FULL DOSE)
     Route: 042
  5. MEROPENEM [Concomitant]
     Active Substance: MEROPENEM
     Indication: Skin ulcer
     Dosage: 2 G, TID/EVERY EIGHT HOUR
     Route: 042
  6. MEROPENEM [Concomitant]
     Active Substance: MEROPENEM
     Indication: Wound infection pseudomonas
     Dosage: UNK UNKNOWN, UNKNOWN (DOSE ADJUSMENT FOR RENAL FUNCTION)
     Route: 042
  7. MEROPENEM [Concomitant]
     Active Substance: MEROPENEM
     Dosage: UNK UNKNOWN, UNKNOWN (FULL DOSE)
     Route: 042
  8. GENTAMICIN [Concomitant]
     Active Substance: GENTAMICIN
     Indication: Skin ulcer
     Dosage: 80 MG, BID/EVERY 12 HOUR
     Route: 042
  9. GENTAMICIN [Concomitant]
     Active Substance: GENTAMICIN
     Indication: Wound infection pseudomonas
  10. RAMIPRIL [Concomitant]
     Active Substance: RAMIPRIL
     Indication: Hypertension
     Dosage: UNK UNKNOWN, UNKNOWN
     Route: 065
  11. BUPRENORPHINE [Concomitant]
     Active Substance: BUPRENORPHINE
     Indication: Pain management
     Dosage: UNK UNKNOWN, UNKNOWN
     Route: 065
  12. PREGABALIN [Concomitant]
     Active Substance: PREGABALIN
     Indication: Pain management
     Dosage: UNK UNKNOWN, UNKNOWN
     Route: 065
  13. ACETAMINOPHEN [Concomitant]
     Active Substance: ACETAMINOPHEN
     Indication: Pain management
     Dosage: UNK UNKNOWN, UNKNOWN
     Route: 065
  14. UNSPECIFIED INGREDIENT [Concomitant]
     Active Substance: UNSPECIFIED INGREDIENT
     Indication: Skin ulcer
     Dosage: UNK UNKNOWN, UNKNOWN
     Route: 065

REACTIONS (2)
  - Pseudo-Bartter syndrome [Recovered/Resolved]
  - Acute kidney injury [Recovered/Resolved]
